FAERS Safety Report 6358322-3 (Version None)
Quarter: 2009Q3

REPORT INFORMATION
  Report Type: 
  Country: None (occurrence: None)
  Receive Date: 20090916
  Receipt Date: 20090914
  Transmission Date: 20100115
  Serious: Yes (Death)
  Sender: FDA-Public Use
  Company Number: PHFR2003GB02225

PATIENT
  Sex: Female
  Weight: 92 kg

DRUGS (6)
  1. CLOZARIL [Suspect]
     Indication: SCHIZOPHRENIA
     Dosage: 450MG/DAY
     Route: 048
     Dates: start: 20011210
  2. CARBAMAZEPINE [Suspect]
     Dosage: UNK
     Dates: end: 20030523
  3. VALPROATE SODIUM [Concomitant]
     Indication: EPILEPSY
     Dosage: UNK
     Route: 048
     Dates: start: 20030523
  4. VALPROATE SODIUM [Concomitant]
     Dosage: 2500MG/DAY
     Dates: start: 20030524, end: 20030528
  5. AMISULPRIDE [Concomitant]
     Indication: SCHIZOPHRENIA
     Dosage: 400MG/DAY
     Route: 048
     Dates: start: 20030519, end: 20030528
  6. HYOSCINE [Concomitant]
     Indication: SALIVARY HYPERSECRETION
     Route: 048
     Dates: start: 20030424, end: 20030528

REACTIONS (2)
  - EPILEPSY [None]
  - TONGUE BITING [None]
